FAERS Safety Report 8032146-3 (Version None)
Quarter: 2012Q1

REPORT INFORMATION
  Report Type: 
  Country: None (occurrence: None)
  Receive Date: 20120109
  Receipt Date: 20120104
  Transmission Date: 20120608
  Serious: Yes (Hospitalization, Other)
  Sender: FDA-Public Use
  Company Number: GB-MERCK-1201USA00429

PATIENT
  Age: 76 Year
  Sex: Female

DRUGS (8)
  1. DOMPERIDONE [Concomitant]
     Indication: NAUSEA
     Route: 048
     Dates: start: 20111108
  2. DOXASIN [Concomitant]
     Indication: HYPERTENSION
     Route: 048
  3. DECADRON [Suspect]
     Indication: MULTIPLE MYELOMA
     Route: 048
     Dates: start: 20111108
  4. ACYCLOVIR [Concomitant]
     Route: 048
     Dates: start: 20111108
  5. OMEPRAZOLE [Concomitant]
     Route: 048
  6. ASPIRIN [Concomitant]
     Indication: TRANSIENT ISCHAEMIC ATTACK
     Route: 048
     Dates: start: 19900101, end: 20111120
  7. VELCADE [Suspect]
     Indication: MULTIPLE MYELOMA
     Route: 042
     Dates: start: 20111108
  8. ATENOLOL [Concomitant]
     Indication: HYPERTENSION
     Route: 048
     Dates: start: 19900101

REACTIONS (2)
  - VOMITING [None]
  - ABDOMINAL PAIN UPPER [None]
